FAERS Safety Report 17710016 (Version 2)
Quarter: 2020Q2

REPORT INFORMATION
  Report Type: Spontaneous
  Country: FR (occurrence: FR)
  Receive Date: 20200427
  Receipt Date: 20200612
  Transmission Date: 20200714
  Serious: Yes (Disabling)
  Sender: FDA-Public Use
  Company Number: FR-TEVA-2020-FR-1229645

PATIENT
  Age: 52 Year
  Sex: Female

DRUGS (3)
  1. ACTONEL [Suspect]
     Active Substance: RISEDRONATE SODIUM
     Indication: OSTEOPOROSIS
     Dosage: 35 MILLIGRAM DAILY; GASTRO-RESISTANT, 1 PER DAY, ACTONEL GASTRO-RESISTANT
     Route: 048
     Dates: start: 20200301, end: 20200301
  2. CALCIUM [Concomitant]
     Active Substance: CALCIUM
     Route: 065
  3. VITAMIN D [Concomitant]
     Active Substance: VITAMIN D NOS
     Route: 065

REACTIONS (4)
  - Chest pain [Recovered/Resolved]
  - Eye pain [Recovered/Resolved]
  - Muscle disorder [Recovered/Resolved]
  - Pain in jaw [Recovered/Resolved]
